FAERS Safety Report 4807191-9 (Version None)
Quarter: 2005Q4

REPORT INFORMATION
  Report Type: 
  Country: None (occurrence: None)
  Receive Date: 20051024
  Receipt Date: 20051013
  Transmission Date: 20060501
  Serious: Yes (Hospitalization)
  Sender: FDA-Public Use
  Company Number: PHRM2005FR02732

PATIENT
  Age: 81 Year
  Sex: Male

DRUGS (8)
  1. PRAXILENE [Suspect]
     Indication: RAYNAUD'S PHENOMENON
     Route: 048
  2. TANAKAN [Suspect]
     Route: 048
  3. MOPRAL [Suspect]
     Route: 048
  4. PROPOXYPHENE 65 ACETAMINOPHEN COMPOUND CAP [Suspect]
     Route: 048
  5. ZESTORETIC [Suspect]
     Indication: ESSENTIAL HYPERTENSION
     Route: 048
  6. HAVLANE [Suspect]
     Route: 048
     Dates: start: 19720101
  7. DIAMICRON [Suspect]
     Route: 048
     Dates: start: 19720101
  8. NITRODERM [Suspect]
     Indication: MYOCARDIAL INFARCTION
     Route: 062

REACTIONS (3)
  - PRURITUS [None]
  - RASH PUSTULAR [None]
  - SKIN EXFOLIATION [None]
